FAERS Safety Report 8151313-1 (Version None)
Quarter: 2012Q1

REPORT INFORMATION
  Report Type: 
  Country: None (occurrence: None)
  Receive Date: 20120220
  Receipt Date: 20120209
  Transmission Date: 20120608
  Serious: Yes (Hospitalization)
  Sender: FDA-Public Use
  Company Number: JP-ASTRAZENECA-2012SE10452

PATIENT
  Age: 35 Year
  Sex: Male
  Weight: 90 kg

DRUGS (7)
  1. OMEPRAZOLE [Concomitant]
     Route: 065
     Dates: start: 20110201
  2. CANDESARTAN CILEXETIL [Suspect]
     Route: 048
     Dates: start: 20110201, end: 20120114
  3. PLETAL [Interacting]
     Route: 048
     Dates: start: 20120112, end: 20120114
  4. METFORMIN HCL [Concomitant]
     Route: 048
     Dates: start: 20110212
  5. SIMVASTATIN [Concomitant]
     Route: 048
     Dates: start: 20110201
  6. TAMSULOSIN HYDROCHLORIDE [Concomitant]
     Route: 048
     Dates: start: 20110201
  7. AMILORIDE HCL AND HYDROCHLOROTHIAZIDE [Interacting]
     Dosage: 5 MG/50 MG 1 DF DAILY
     Route: 048
     Dates: start: 20110314, end: 20120114

REACTIONS (3)
  - SYNCOPE [None]
  - HYPOTENSION [None]
  - DRUG INTERACTION [None]
